FAERS Safety Report 23133204 (Version 1)
Quarter: 2023Q4

REPORT INFORMATION
  Report Type: Report from Study
  Country: US (occurrence: US)
  Receive Date: 20231101
  Receipt Date: 20231101
  Transmission Date: 20240110
  Serious: No
  Sender: FDA-Public Use
  Company Number: US-002147023-NVSC2023US232916

PATIENT
  Sex: Female

DRUGS (1)
  1. LEQVIO [Suspect]
     Active Substance: INCLISIRAN SODIUM
     Indication: Product used for unknown indication
     Dosage: UNK
     Route: 058
     Dates: start: 20231016

REACTIONS (4)
  - Injection site pain [Recovering/Resolving]
  - COVID-19 [Recovering/Resolving]
  - Asthenia [Recovering/Resolving]
  - Hypoacusis [Recovering/Resolving]
